FAERS Safety Report 4688641-8 (Version None)
Quarter: 2005Q2

REPORT INFORMATION
  Report Type: 
  Country: None (occurrence: None)
  Receive Date: 20050613
  Receipt Date: 20050527
  Transmission Date: 20051028
  Serious: Yes (Death, Hospitalization)
  Sender: FDA-Public Use
  Company Number: US-AMGEN-US136435

PATIENT
  Sex: Male
  Weight: 49.2 kg

DRUGS (13)
  1. ENBREL [Suspect]
     Indication: GRAFT VERSUS HOST DISEASE
     Route: 058
     Dates: start: 20050304, end: 20050503
  2. MEDROL [Concomitant]
     Dates: start: 20050501
  3. BUDESONIDE [Concomitant]
     Dates: start: 20050501
  4. ATGAM [Concomitant]
     Dates: start: 20050501
  5. VANCOMYCIN [Concomitant]
     Dates: start: 20050401
  6. VANCOMYCIN [Concomitant]
     Dates: start: 20050501
  7. CEFEPIME [Concomitant]
     Dates: start: 20050501
  8. VASOPRESSIN INJECTION [Concomitant]
  9. DOPAMINE HCL [Concomitant]
     Dates: start: 20050501
  10. EPINEPHRINE [Concomitant]
     Dates: start: 20050501
  11. MILRINONE [Concomitant]
     Dates: start: 20050501
  12. GENTAMICIN [Concomitant]
     Dates: start: 20050501
  13. MEROPENEM [Concomitant]
     Dates: start: 20050501

REACTIONS (13)
  - ACIDOSIS [None]
  - ASCITES [None]
  - BONE MARROW DEPRESSION [None]
  - DIALYSIS [None]
  - GRAFT DYSFUNCTION [None]
  - GRAFT VERSUS HOST DISEASE [None]
  - HAEMODYNAMIC INSTABILITY [None]
  - PNEUMONIA [None]
  - RENAL FAILURE [None]
  - RESPIRATORY DISTRESS [None]
  - RESPIRATORY FAILURE [None]
  - STAPHYLOCOCCAL SEPSIS [None]
  - THERAPY NON-RESPONDER [None]
